FAERS Safety Report 5833691-9 (Version None)
Quarter: 2008Q3

REPORT INFORMATION
  Report Type: 
  Country: None (occurrence: None)
  Receive Date: 20080804
  Receipt Date: 20080804
  Transmission Date: 20090109
  Serious: No
  Sender: FDA-Public Use
  Company Number: None

PATIENT
  Age: 62 Year
  Sex: Female
  Weight: 50.8029 kg

DRUGS (1)
  1. ACTONEL [Suspect]
     Indication: OSTEOPENIA
     Dosage: 35 MG 1 PER WEEK PO
     Route: 048
     Dates: start: 20071205, end: 20080527

REACTIONS (2)
  - ARTHRALGIA [None]
  - DEPRESSION [None]
